FAERS Safety Report 5429877-8 (Version None)
Quarter: 2007Q3

REPORT INFORMATION
  Report Type: 
  Country: None (occurrence: None)
  Receive Date: 20070829
  Receipt Date: 20070820
  Transmission Date: 20080115
  Serious: Yes (Other)
  Sender: FDA-Public Use
  Company Number: US-PFIZER INC-2007046323

PATIENT
  Sex: Female
  Weight: 95.7 kg

DRUGS (13)
  1. XANAX [Suspect]
     Indication: BIPOLAR DISORDER
     Route: 048
  2. XANAX [Suspect]
     Indication: ANXIETY
  3. ZOLOFT [Concomitant]
  4. AMBIEN [Concomitant]
  5. SPIRIVA [Concomitant]
  6. ADVAIR DISKUS 100/50 [Concomitant]
  7. QUINAPRIL HCL [Concomitant]
  8. MONTELUKAST SODIUM [Concomitant]
  9. LOVASTATIN [Concomitant]
  10. FLONASE [Concomitant]
  11. TOPAMAX [Concomitant]
  12. XOPENEX [Concomitant]
  13. OXYGEN [Concomitant]

REACTIONS (2)
  - DYSPNOEA [None]
  - GRAND MAL CONVULSION [None]
